FAERS Safety Report 6749504-7 (Version None)
Quarter: 2010Q2

REPORT INFORMATION
  Report Type: 
  Country: None (occurrence: None)
  Receive Date: 20100601
  Receipt Date: 20100525
  Transmission Date: 20101027
  Serious: Yes (Life-Threatening)
  Sender: FDA-Public Use
  Company Number: JP-ASTRAZENECA-2010SE07010

PATIENT
  Age: 268 Month
  Sex: Female
  Weight: 44 kg

DRUGS (2)
  1. MEROPEN [Suspect]
     Route: 042
     Dates: start: 20051212, end: 20051214
  2. MILNACIPRAN HYDROCHLORIDE [Concomitant]
     Route: 048

REACTIONS (1)
  - INFECTIOUS MONONUCLEOSIS [None]
